FAERS Safety Report 4773128-4 (Version None)
Quarter: 2005Q3

REPORT INFORMATION
  Report Type: 
  Country: None (occurrence: None)
  Receive Date: 20050919
  Receipt Date: 20050907
  Transmission Date: 20060218
  Serious: Yes (Hospitalization, Other)
  Sender: FDA-Public Use
  Company Number: 2005124929

PATIENT
  Sex: Male
  Weight: 90.7194 kg

DRUGS (2)
  1. LISTERINE (MENTHOL, METHYL SALICYLATE, EUCALYPTOL, THYMOL) [Suspect]
     Indication: DENTAL DISORDER PROPHYLAXIS
     Dosage: A MOUTHFUL ONCE DAILY, ORAL TOPICAL
     Route: 048
  2. LISTERINE MOUTHWASH ADVANCED ARCTIC MINT (MENTHOL, METHYL SALICYLATE, [Suspect]
     Indication: DENTAL DISORDER PROPHYLAXIS
     Dosage: A MOUTHFUL ONCE DAILY, ORAL TOPICAL
     Route: 048
     Dates: start: 20050101

REACTIONS (2)
  - LARYNGEAL OEDEMA [None]
  - PHARYNGEAL OEDEMA [None]
